FAERS Safety Report 12931366 (Version 1)
Quarter: 2016Q4

REPORT INFORMATION
  Report Type: Spontaneous
  Country: US (occurrence: US)
  Receive Date: 20161110
  Receipt Date: 20161110
  Transmission Date: 20170207
  Serious: No
  Sender: FDA-Public Use
  Company Number: US-JAZZ-2016-US-018178

PATIENT
  Age: 49 Year
  Sex: Female

DRUGS (35)
  1. BUTRANS [Concomitant]
     Active Substance: BUPRENORPHINE
  2. LANTUS SOLOSTAR [Concomitant]
     Active Substance: INSULIN GLARGINE
  3. XYREM [Suspect]
     Active Substance: SODIUM OXYBATE
     Indication: NARCOLEPSY
     Dosage: 2.25 G, BID
     Route: 048
     Dates: start: 20160913
  4. NUVIGIL [Suspect]
     Active Substance: ARMODAFINIL
  5. ALDACTONE [Concomitant]
     Active Substance: SPIRONOLACTONE
  6. TRAMADOL HCL [Concomitant]
     Active Substance: TRAMADOL HYDROCHLORIDE
  7. METOLAZONE. [Concomitant]
     Active Substance: METOLAZONE
  8. XYREM [Suspect]
     Active Substance: SODIUM OXYBATE
     Dosage: DOSE ADJUSTMENT
     Route: 048
     Dates: start: 2016, end: 2016
  9. PRAVASTATIN SODIUM. [Concomitant]
     Active Substance: PRAVASTATIN SODIUM
  10. XYREM [Suspect]
     Active Substance: SODIUM OXYBATE
     Dosage: 4.5 G, BID
     Route: 048
     Dates: start: 2016
  11. HUMALOG [Concomitant]
     Active Substance: INSULIN LISPRO
  12. CELEBREX [Concomitant]
     Active Substance: CELECOXIB
  13. KEPPRA [Concomitant]
     Active Substance: LEVETIRACETAM
  14. THEO-24 ER [Concomitant]
  15. LOVENOX [Concomitant]
     Active Substance: ENOXAPARIN SODIUM
  16. LINZESS [Concomitant]
     Active Substance: LINACLOTIDE
  17. VITAMIN D2 [Concomitant]
     Active Substance: ERGOCALCIFEROL
  18. CYMBALTA [Concomitant]
     Active Substance: DULOXETINE HYDROCHLORIDE
  19. DEXILANT DR [Concomitant]
  20. SKELAXIN [Concomitant]
     Active Substance: METAXALONE
  21. TORSEMIDE. [Concomitant]
     Active Substance: TORSEMIDE
  22. XOPENEX [Concomitant]
     Active Substance: LEVALBUTEROL HYDROCHLORIDE
  23. PROVIGIL [Suspect]
     Active Substance: MODAFINIL
     Indication: PRODUCT USED FOR UNKNOWN INDICATION
  24. METFORMIN HCL [Concomitant]
     Active Substance: METFORMIN HYDROCHLORIDE
  25. TRILIPIX DR [Concomitant]
  26. POTASSIUM CL ER [Concomitant]
     Active Substance: POTASSIUM CHLORIDE
  27. XOPENEX HFA [Concomitant]
     Active Substance: LEVALBUTEROL TARTRATE
  28. FIORICET [Concomitant]
     Active Substance: ACETAMINOPHEN\BUTALBITAL\CAFFEINE
  29. RESTASIS [Concomitant]
     Active Substance: CYCLOSPORINE
  30. BYSTOLIC [Concomitant]
     Active Substance: NEBIVOLOL HYDROCHLORIDE
  31. REQUIP [Concomitant]
     Active Substance: ROPINIROLE HYDROCHLORIDE
  32. ALLOPURINOL                        /00003302/ [Concomitant]
     Active Substance: ALLOPURINOL
  33. OXYGEN. [Concomitant]
     Active Substance: OXYGEN
  34. NEURONTIN [Concomitant]
     Active Substance: GABAPENTIN
  35. SINGULAIR [Concomitant]
     Active Substance: MONTELUKAST SODIUM

REACTIONS (13)
  - Myalgia [Unknown]
  - Dyspnoea [Unknown]
  - Musculoskeletal discomfort [Not Recovered/Not Resolved]
  - Blood pressure increased [Not Recovered/Not Resolved]
  - Palpitations [Not Recovered/Not Resolved]
  - Feeling hot [Unknown]
  - Liver disorder [Unknown]
  - Fluid retention [Unknown]
  - Heart rate increased [Not Recovered/Not Resolved]
  - Arthralgia [Unknown]
  - Feeling abnormal [Not Recovered/Not Resolved]
  - Nocturia [Unknown]
  - Headache [Not Recovered/Not Resolved]

NARRATIVE: CASE EVENT DATE: 20160916
